FAERS Safety Report 7620719-9 (Version None)
Quarter: 2011Q3

REPORT INFORMATION
  Report Type: 
  Country: None (occurrence: None)
  Receive Date: 20110719
  Receipt Date: 20110224
  Transmission Date: 20111222
  Serious: Yes (Hospitalization, Disabling, Other)
  Sender: FDA-Public Use
  Company Number: ES-VIIV HEALTHCARE LIMITED-B0703930A

PATIENT
  Sex: Male
  Weight: 69 kg

DRUGS (4)
  1. DARUNAVIR ETHANOLATE [Concomitant]
     Indication: HIV INFECTION
     Route: 048
     Dates: start: 20080325
  2. MARAVIROC [Suspect]
     Indication: HIV INFECTION
     Dosage: 150MG TWICE PER DAY
     Route: 048
     Dates: start: 20080325
  3. RITONAVIR [Concomitant]
     Indication: HIV INFECTION
     Route: 048
     Dates: start: 20080325
  4. RALTEGRAVIR [Concomitant]
     Indication: HIV INFECTION
     Route: 048
     Dates: start: 20080218

REACTIONS (1)
  - GASTRIC CANCER [None]
